FAERS Safety Report 8447223-2 (Version None)
Quarter: 2012Q2

REPORT INFORMATION
  Report Type: 
  Country: None (occurrence: None)
  Receive Date: 20120619
  Receipt Date: 20111011
  Transmission Date: 20120825
  Serious: No
  Sender: FDA-Public Use
  Company Number: US-PFIZER INC-K201101204

PATIENT
  Sex: Female

DRUGS (4)
  1. LEVOXYL [Suspect]
     Dosage: 25 MG, 1X/DAY
     Route: 048
     Dates: start: 20090101
  2. LEVOXYL [Suspect]
     Indication: THYROID DISORDER
     Dosage: 62.5 MG, 1X/DAY
     Route: 048
  3. LEVOXYL [Suspect]
     Dosage: 50 MG, 1X/DAY
     Route: 048
  4. CYTOMEL [Concomitant]
     Dosage: UNK

REACTIONS (1)
  - ORAL DISCOMFORT [None]
